FAERS Safety Report 17276541 (Version 1)
Quarter: 2020Q1

REPORT INFORMATION
  Report Type: Spontaneous
  Country: US (occurrence: US)
  Receive Date: 20200116
  Receipt Date: 20200116
  Transmission Date: 20200409
  Serious: Yes (Death, Hospitalization, Other)
  Sender: FDA-Public Use
  Company Number: US-PFIZER INC-2020015181

PATIENT
  Age: 37 Year
  Sex: Male

DRUGS (9)
  1. GABAPENTIN. [Suspect]
     Active Substance: GABAPENTIN
     Dosage: UNK  (INGESTION)
     Route: 048
  2. HEROIN [Suspect]
     Active Substance: DIAMORPHINE
     Dosage: UNK
     Route: 051
  3. GABAPENTIN. [Suspect]
     Active Substance: GABAPENTIN
     Dosage: UNK
     Route: 051
  4. COCAINE [Suspect]
     Active Substance: COCAINE
     Dosage: UNK
     Route: 051
  5. COCAINE [Suspect]
     Active Substance: COCAINE
     Dosage: UNK (INHALATION/NASAL)
     Route: 055
  6. HEROIN [Suspect]
     Active Substance: DIAMORPHINE
     Dosage: UNK (INHALATION/NASAL)
     Route: 055
  7. GABAPENTIN. [Suspect]
     Active Substance: GABAPENTIN
     Dosage: UNK (INHALATION/NASAL)
     Route: 055
  8. HEROIN [Suspect]
     Active Substance: DIAMORPHINE
     Dosage: UNK (INGESTION)
     Route: 048
  9. COCAINE [Suspect]
     Active Substance: COCAINE
     Dosage: UNK (INGESTION)
     Route: 048

REACTIONS (3)
  - Drug abuse [Fatal]
  - Cardiac arrest [Fatal]
  - Respiratory arrest [Fatal]

NARRATIVE: CASE EVENT DATE: 2018
